FAERS Safety Report 5680334-3 (Version None)
Quarter: 2008Q1

REPORT INFORMATION
  Report Type: 
  Country: None (occurrence: None)
  Receive Date: 20080326
  Receipt Date: 20080318
  Transmission Date: 20080703
  Serious: Yes (Other)
  Sender: FDA-Public Use
  Company Number: GB-ROCHE-553930

PATIENT
  Sex: Female

DRUGS (14)
  1. NAPROSYN [Suspect]
     Indication: DRUG USE FOR UNKNOWN INDICATION
     Route: 065
     Dates: start: 19980826, end: 19980826
  2. SEROXAT [Suspect]
     Indication: DEPRESSION
     Route: 065
     Dates: start: 19980826, end: 19980826
  3. SEROXAT [Suspect]
     Dosage: 4 STRIPS TIMES 20 OR 30MG
     Route: 065
     Dates: start: 20010108, end: 20010108
  4. SEROXAT [Suspect]
     Route: 065
     Dates: start: 19961101
  5. SEROXAT [Suspect]
     Dosage: DOSE INCREASED
     Route: 065
  6. SEROXAT [Suspect]
     Route: 065
     Dates: start: 19980701
  7. SEROXAT [Suspect]
     Dosage: RESTARTED
     Route: 065
     Dates: start: 20000301
  8. SEROXAT [Suspect]
     Dosage: DOSE INCREASED
     Route: 065
     Dates: start: 20000501, end: 20021001
  9. SEROXAT [Suspect]
     Route: 065
     Dates: start: 20021001
  10. ETHANOL [Suspect]
     Indication: DRUG USE FOR UNKNOWN INDICATION
     Dosage: SIX PINTS OF LAGER
     Route: 065
     Dates: start: 19980826, end: 19980826
  11. ETHANOL [Suspect]
     Dosage: 1 BOTTLE OF WINE
     Route: 065
     Dates: start: 20010108, end: 20010108
  12. UNSPECIFIED DRUG [Suspect]
     Indication: DRUG USE FOR UNKNOWN INDICATION
     Dosage: REORTED AS CAMPDEN
     Route: 065
     Dates: start: 19980826, end: 19980826
  13. CITALOPRAM [Concomitant]
     Indication: DEPRESSION
     Dates: start: 20021001, end: 20030601
  14. CITALOPRAM [Concomitant]
     Dates: start: 20050701

REACTIONS (6)
  - CRYING [None]
  - DRUG WITHDRAWAL SYNDROME [None]
  - MALAISE [None]
  - NO ADVERSE EVENT [None]
  - OVERDOSE [None]
  - SUICIDE ATTEMPT [None]
